FAERS Safety Report 8083792-2 (Version None)
Quarter: 2012Q1

REPORT INFORMATION
  Report Type: 
  Country: None (occurrence: None)
  Receive Date: 20120128
  Receipt Date: 20110124
  Transmission Date: 20120608
  Serious: No
  Sender: FDA-Public Use
  Company Number: US-ABBOTT-11P-163-0701169-00

PATIENT
  Sex: Female
  Weight: 53.118 kg

DRUGS (9)
  1. LORAZEPAM [Concomitant]
     Indication: ANXIETY
  2. PERCOCET [Concomitant]
     Indication: OSTEOARTHRITIS
  3. HUMIRA [Suspect]
     Indication: PSORIASIS
     Dates: start: 20101101
  4. INDOMETHACIN [Concomitant]
     Indication: OSTEOARTHRITIS
  5. ZOLOFT [Concomitant]
     Indication: SEASONAL AFFECTIVE DISORDER
  6. FEXOFENADINE [Concomitant]
     Indication: SEASONAL ALLERGY
  7. METHYLIN [Concomitant]
     Indication: ATTENTION DEFICIT/HYPERACTIVITY DISORDER
  8. FLEXERIL [Concomitant]
     Indication: OSTEOARTHRITIS
  9. METHOTREXATE [Concomitant]
     Indication: PRODUCT USED FOR UNKNOWN INDICATION

REACTIONS (2)
  - INAPPROPRIATE SCHEDULE OF DRUG ADMINISTRATION [None]
  - DEVICE ISSUE [None]
